FAERS Safety Report 7476315-X (Version None)
Quarter: 2011Q2

REPORT INFORMATION
  Report Type: 
  Country: None (occurrence: None)
  Receive Date: 20110512
  Receipt Date: 20110324
  Transmission Date: 20111010
  Serious: Yes (Other)
  Sender: FDA-Public Use
  Company Number: US-BAYER-201035909NA

PATIENT
  Age: 33 Year
  Sex: Female
  Weight: 60.317 kg

DRUGS (2)
  1. YAZ [Suspect]
     Route: 048
     Dates: start: 20030101, end: 20090901
  2. YASMIN [Suspect]
     Route: 048
     Dates: start: 20030101, end: 20090901

REACTIONS (4)
  - GALLBLADDER DISORDER [None]
  - BILIARY DYSKINESIA [None]
  - CHOLECYSTITIS [None]
  - CHOLECYSTITIS CHRONIC [None]
